FAERS Safety Report 11894740 (Version 5)
Quarter: 2016Q1

REPORT INFORMATION
  Report Type: Report from Study
  Country: CL (occurrence: CL)
  Receive Date: 20160107
  Receipt Date: 20160314
  Transmission Date: 20160526
  Serious: Yes (Death, Life-Threatening, Hospitalization)
  Sender: FDA-Public Use
  Company Number: CL-AMGEN-CHLCT2014002311

PATIENT
  Age: 51 Year
  Sex: Female

DRUGS (20)
  1. PREDNISONE. [Concomitant]
     Active Substance: PREDNISONE
     Indication: RHEUMATOID ARTHRITIS
     Dosage: 7.5 MG, 1X/DAY
     Route: 048
     Dates: start: 20120913
  2. DIPIRONA [Concomitant]
     Active Substance: METAMIZOLE
     Indication: FUNCTIONAL GASTROINTESTINAL DISORDER
     Dosage: 2 G, SINGLE
     Route: 042
     Dates: start: 20140912, end: 20140912
  3. PHYSIOLOGICAL SALINE SOLUTION [Concomitant]
     Active Substance: SODIUM CHLORIDE
     Indication: FUNCTIONAL GASTROINTESTINAL DISORDER
     Dosage: 500 MG, SINGLE (LIQUID)
     Route: 042
     Dates: start: 20140912, end: 20140912
  4. ETANERCEPT [Suspect]
     Active Substance: ETANERCEPT
     Dosage: 50 MG, WEEKLY
     Route: 065
     Dates: end: 20151002
  5. CELECOXIB. [Concomitant]
     Active Substance: CELECOXIB
     Indication: RHEUMATOID ARTHRITIS
     Dosage: 200 MG, 1X/DAY
     Route: 048
     Dates: start: 20101221
  6. LEVOTHYROXINE. [Concomitant]
     Active Substance: LEVOTHYROXINE
     Indication: HYPOTHYROIDISM
     Dosage: 50 MG, 1X/DAY
     Route: 048
     Dates: start: 2008
  7. PARACETAMOL [Concomitant]
     Active Substance: ACETAMINOPHEN
     Indication: FUNCTIONAL GASTROINTESTINAL DISORDER
     Dosage: 500 MG, 3X/DAY
     Route: 048
     Dates: start: 20150812, end: 20151002
  8. CLOTRIMAZOLE. [Concomitant]
     Active Substance: CLOTRIMAZOLE
     Indication: VULVOVAGINAL MYCOTIC INFECTION
     Dosage: (1 UNIT NOT REPORTED), 3 IN 1 DAY
     Route: 061
     Dates: start: 20150120, end: 20150224
  9. NPH INSULIN [Concomitant]
     Active Substance: INSULIN BEEF
     Indication: TYPE 2 DIABETES MELLITUS
     Dosage: 40 IU, 1X/DAY
     Route: 058
     Dates: start: 201207
  10. NPH INSULIN [Concomitant]
     Active Substance: INSULIN BEEF
     Dosage: 8 IU, 1X/DAY
     Route: 058
     Dates: start: 201207
  11. NPH INSULIN [Concomitant]
     Active Substance: INSULIN BEEF
     Dosage: PM DOSE - 16 (UNITS NOT REPORTED),1 IN 1 DAY
     Route: 058
     Dates: start: 20150204
  12. DIPYRONE [Concomitant]
     Active Substance: DIPYRONE
     Indication: CONTUSION
     Dosage: 1 G, SINGLE
     Route: 030
     Dates: start: 20130905, end: 20130905
  13. FOLIC ACID. [Concomitant]
     Active Substance: FOLIC ACID
     Dosage: 1 MG, 1X/DAY
     Route: 048
     Dates: start: 20101221
  14. METFORMIN [Concomitant]
     Active Substance: METFORMIN HYDROCHLORIDE
     Indication: TYPE 2 DIABETES MELLITUS
     Dosage: UNK
     Route: 048
     Dates: start: 201207
  15. PHYSIOLOGICAL SALINE SOLUTION [Concomitant]
     Active Substance: SODIUM CHLORIDE
     Indication: TYPE 2 DIABETES MELLITUS
     Dosage: 1000 ML, SINGLE
     Route: 042
     Dates: start: 20150204, end: 20150204
  16. METHOTREXATE [Concomitant]
     Active Substance: METHOTREXATE
     Indication: RHEUMATOID ARTHRITIS
     Dosage: 15 MG, WEEKLY
     Route: 048
     Dates: start: 20101221
  17. ETANERCEPT [Suspect]
     Active Substance: ETANERCEPT
     Indication: RHEUMATOID ARTHRITIS
     Dosage: 50 MG, WEEKLY
     Route: 058
     Dates: start: 20121105, end: 20131105
  18. OMEPRAZOLE. [Concomitant]
     Active Substance: OMEPRAZOLE
     Dosage: 20 MG, 1X/DAY
     Route: 048
     Dates: start: 20101221
  19. IBUPROFEN. [Concomitant]
     Active Substance: IBUPROFEN
     Indication: CONTUSION
     Dosage: 400 MG, SINGLE DOSE
     Route: 048
     Dates: start: 20130905, end: 20130912
  20. TRIMEBUTINE [Concomitant]
     Active Substance: TRIMEBUTINE
     Indication: FUNCTIONAL GASTROINTESTINAL DISORDER
     Dosage: 300 MG, DAILY
     Route: 048
     Dates: start: 20140912, end: 20141012

REACTIONS (3)
  - Herpes zoster [Not Recovered/Not Resolved]
  - Septic shock [Fatal]
  - Pneumonia [Not Recovered/Not Resolved]

NARRATIVE: CASE EVENT DATE: 20131105
